FAERS Safety Report 9540132 (Version 1)
Quarter: 2013Q3

REPORT INFORMATION
  Report Type: Spontaneous
  Country: FR (occurrence: FR)
  Receive Date: 20130920
  Receipt Date: 20130920
  Transmission Date: 20140515
  Serious: Yes (Death)
  Sender: FDA-Public Use
  Company Number: FR-JNJFOC-20130904498

PATIENT
  Sex: Male

DRUGS (1)
  1. ZYTIGA [Suspect]
     Indication: PRODUCT USED FOR UNKNOWN INDICATION
     Dosage: 250 MG X 4
     Route: 048
     Dates: start: 20130810, end: 20130813

REACTIONS (3)
  - Dyspnoea [Fatal]
  - Bronchospasm [Fatal]
  - Pleural effusion [Unknown]
